FAERS Safety Report 5376915-7 (Version None)
Quarter: 2007Q3

REPORT INFORMATION
  Report Type: 
  Country: None (occurrence: None)
  Receive Date: 20070703
  Receipt Date: 20070625
  Transmission Date: 20080115
  Serious: Yes (Other)
  Sender: FDA-Public Use
  Company Number: GB-ELI_LILLY_AND_COMPANY-GB200706000753

PATIENT
  Age: 33 Year
  Sex: Male

DRUGS (4)
  1. FORTEO [Suspect]
     Dosage: 20 UG, UNK
  2. INSULIN [Concomitant]
  3. IBUPROFEN [Concomitant]
  4. IRON [Concomitant]

REACTIONS (1)
  - BLOOD CREATININE INCREASED [None]
